FAERS Safety Report 6740310-6 (Version None)
Quarter: 2010Q2

REPORT INFORMATION
  Report Type: 
  Country: None (occurrence: None)
  Receive Date: 20100521
  Receipt Date: 20100510
  Transmission Date: 20101027
  Serious: Yes (Other)
  Sender: FDA-Public Use
  Company Number: CA-1181915

PATIENT
  Sex: Female

DRUGS (1)
  1. BETOPTIC S         (BETAXOLOL HYDROCHLORIDE) 0.25% OPHTHALMIC SUSPENSI [Suspect]
     Indication: GLAUCOMA
     Dosage: OPHTHALMIC
     Route: 047
     Dates: start: 20000101

REACTIONS (2)
  - ALOPECIA [None]
  - DEAFNESS UNILATERAL [None]
